FAERS Safety Report 9603446 (Version 3)
Quarter: 2013Q4

REPORT INFORMATION
  Report Type: Spontaneous
  Country: JP (occurrence: JP)
  Receive Date: 20131007
  Receipt Date: 20131025
  Transmission Date: 20140711
  Serious: Yes (Other)
  Sender: FDA-Public Use
  Company Number: JP-EISAI INC-E2090-02903-SPO-JP

PATIENT
  Age: 7 Year
  Sex: 0
  Weight: 20.6 kg

DRUGS (9)
  1. EXCEGRAN [Suspect]
     Indication: EPILEPSY
     Dosage: 80 MG/DAY
     Route: 048
     Dates: start: 20121001, end: 20130804
  2. EXCEGRAN [Suspect]
     Dosage: 100 MG/DAY
     Route: 048
     Dates: start: 20130805, end: 20130910
  3. RENIVACE [Concomitant]
     Indication: CARDIAC DISORDER
     Dosage: 1.50 MG/DAY
     Route: 048
  4. LASIX [Concomitant]
     Indication: CARDIAC DISORDER
     Dosage: 13.0 MG/DAY
     Route: 048
  5. ALDACTONE A [Concomitant]
     Indication: CARDIAC DISORDER
     Dosage: 13.0 MG/DAY
     Route: 048
  6. FLUITRAN [Concomitant]
     Indication: CARDIAC DISORDER
     Dosage: 0.6 MG/DAY
     Route: 048
  7. WARFARIN [Concomitant]
     Indication: CARDIAC DISORDER
     Dosage: 1.4 MG/DAY
     Route: 048
  8. ASPIRIN [Concomitant]
     Indication: CARDIAC DISORDER
     Dosage: 50 MG/DAY
     Route: 048
  9. SELENICA-R [Concomitant]
     Indication: EPILEPSY
     Dosage: 400 MG/DAY
     Route: 048
     Dates: start: 20130910

REACTIONS (2)
  - Visual acuity reduced [Recovering/Resolving]
  - Diplopia [Recovering/Resolving]
